FAERS Safety Report 5046411-5 (Version None)
Quarter: 2006Q2

REPORT INFORMATION
  Report Type: 
  Country: None (occurrence: None)
  Receive Date: 20060629
  Receipt Date: 20060616
  Transmission Date: 20061013
  Serious: Yes (Other)
  Sender: FDA-Public Use
  Company Number: S06-USA-01895-01

PATIENT
  Age: 66 Year
  Sex: Female

DRUGS (14)
  1. THYROID TAB [Suspect]
     Indication: HYPOTHYROIDISM
     Dosage: 30 MG QD PO
     Route: 048
     Dates: start: 20050901, end: 20060518
  2. HORMONE REPLACEMENT THERAPY [Concomitant]
  3. MULTI-VITAMIN [Concomitant]
  4. CALCIUM CITRATE [Concomitant]
  5. ASCORBIC ACID [Concomitant]
  6. L-LYSINE [Concomitant]
  7. ZYFLAMEND (HERBAL) [Concomitant]
  8. METHYLSULFONYLMETHANE [Concomitant]
  9. PRAVACHOL [Concomitant]
  10. ESTRACE [Concomitant]
  11. ASPIRIN [Concomitant]
  12. VITAMIN D [Concomitant]
  13. VITAMIN B COMPLEX CAP [Concomitant]
  14. MAGNESIUM [Concomitant]

REACTIONS (22)
  - ARTHRITIS [None]
  - ASTHENIA [None]
  - BLOOD UREA INCREASED [None]
  - C-REACTIVE PROTEIN INCREASED [None]
  - CHEST PAIN [None]
  - CONCUSSION [None]
  - CONSTIPATION [None]
  - DIZZINESS [None]
  - FATIGUE [None]
  - FIBROMYALGIA [None]
  - GLAUCOMA [None]
  - GLOMERULAR FILTRATION RATE INCREASED [None]
  - HANGOVER [None]
  - HIGH DENSITY LIPOPROTEIN INCREASED [None]
  - HYPERHIDROSIS [None]
  - HYPOTENSION [None]
  - LOSS OF CONSCIOUSNESS [None]
  - NAUSEA [None]
  - PAIN [None]
  - SINUS BRADYCARDIA [None]
  - SOMNOLENCE [None]
  - SYNCOPE [None]
